FAERS Safety Report 5354239-1 (Version None)
Quarter: 2007Q2

REPORT INFORMATION
  Report Type: 
  Country: None (occurrence: None)
  Receive Date: 20070612
  Receipt Date: 20070531
  Transmission Date: 20071010
  Serious: No
  Sender: FDA-Public Use
  Company Number: US-ASTRAZENECA-2006UW10774

PATIENT
  Age: 614 Month
  Sex: Male
  Weight: 134.1 kg

DRUGS (6)
  1. SEROQUEL [Suspect]
     Indication: DEPRESSION
     Route: 048
     Dates: start: 19970101, end: 20060101
  2. SEROQUEL [Suspect]
     Dosage: 150 TO 300MG
     Route: 048
     Dates: start: 20010101
  3. FEN-PHEN [Concomitant]
     Dates: start: 19900101
  4. GEODON [Concomitant]
  5. RISPERDAL [Concomitant]
  6. TRILAFON [Concomitant]

REACTIONS (1)
  - DIABETES MELLITUS [None]
